FAERS Safety Report 15386159 (Version 2)
Quarter: 2018Q4

REPORT INFORMATION
  Report Type: Spontaneous
  Country: SG (occurrence: SG)
  Receive Date: 20180914
  Receipt Date: 20181126
  Transmission Date: 20190204
  Serious: Yes (Hospitalization, Other)
  Sender: FDA-Public Use
  Company Number: SG-SAKK-2018SA254103AA

PATIENT
  Age: 70 Year
  Sex: Female

DRUGS (4)
  1. GOLIMUMAB [Concomitant]
     Active Substance: GOLIMUMAB
  2. SULPHASALAZINE [Concomitant]
     Active Substance: SULFASALAZINE
     Dosage: UNK
     Dates: start: 2013
  3. PREDNISOLONE. [Concomitant]
     Active Substance: PREDNISOLONE
     Dosage: UNK
     Dates: start: 2013
  4. LEFLUNOMIDE. [Suspect]
     Active Substance: LEFLUNOMIDE
     Indication: RHEUMATOID ARTHRITIS
     Dosage: UNK UNK, UNK

REACTIONS (6)
  - Haematuria [Recovered/Resolved]
  - Dysuria [Recovered/Resolved]
  - Haemorrhage [Recovered/Resolved]
  - Normochromic normocytic anaemia [Unknown]
  - Neovascularisation [Not Recovered/Not Resolved]
  - Thrombocytopenia [Recovered/Resolved]
